FAERS Safety Report 15980653 (Version 1)
Quarter: 2019Q1

REPORT INFORMATION
  Report Type: Spontaneous
  Country: US (occurrence: US)
  Receive Date: 20190219
  Receipt Date: 20190219
  Transmission Date: 20190418
  Serious: Yes (Hospitalization, Other)
  Sender: FDA-Public Use
  Company Number: US-ALLERGAN-1906524US

PATIENT
  Age: 80 Year
  Sex: Female

DRUGS (8)
  1. BOTULINUM TOXIN TYPE A UNK [Interacting]
     Active Substance: BOTULINUM TOXIN TYPE A
     Dosage: 50 TO 150 UNITS; SINGLE
     Route: 043
     Dates: start: 201103, end: 201103
  2. XARELTO [Interacting]
     Active Substance: RIVAROXABAN
     Indication: ATRIAL FIBRILLATION
     Dosage: UNK
     Route: 065
     Dates: start: 2016
  3. BOTULINUM TOXIN TYPE A UNK [Suspect]
     Active Substance: BOTULINUM TOXIN TYPE A
     Indication: HYPERTONIC BLADDER
     Dosage: 150 UNITS, SINGLE
     Route: 043
     Dates: start: 2017, end: 2017
  4. BOTULINUM TOXIN TYPE A UNK [Interacting]
     Active Substance: BOTULINUM TOXIN TYPE A
     Dosage: 50 TO 150 UNITS; SINGLE
     Route: 043
  5. BOTULINUM TOXIN TYPE A UNK [Interacting]
     Active Substance: BOTULINUM TOXIN TYPE A
     Dosage: 50 TO 150 UNITS; SINGLE
     Route: 043
  6. BOTULINUM TOXIN TYPE A UNK [Interacting]
     Active Substance: BOTULINUM TOXIN TYPE A
     Dosage: 50 TO 150 UNITS; SINGLE
     Route: 043
  7. BOTULINUM TOXIN TYPE A UNK [Interacting]
     Active Substance: BOTULINUM TOXIN TYPE A
     Dosage: 50 TO 150 UNITS; SINGLE
     Route: 043
  8. BOTULINUM TOXIN TYPE A UNK [Interacting]
     Active Substance: BOTULINUM TOXIN TYPE A
     Dosage: 50 TO 150 UNITS; SINGLE
     Route: 043

REACTIONS (9)
  - Atrial fibrillation [Unknown]
  - Drug effect incomplete [Unknown]
  - Labelled drug-drug interaction medication error [Unknown]
  - Renal embolism [Unknown]
  - Urinary retention [Recovered/Resolved]
  - Haemorrhage urinary tract [Recovering/Resolving]
  - Pain [Recovered/Resolved]
  - Ureteric obstruction [Recovered/Resolved]
  - Injection site haemorrhage [Unknown]

NARRATIVE: CASE EVENT DATE: 2016
